FAERS Safety Report 6991635-0 (Version None)
Quarter: 2010Q3

REPORT INFORMATION
  Report Type: 
  Country: None (occurrence: None)
  Receive Date: 20100917
  Receipt Date: 20100915
  Transmission Date: 20110219
  Serious: Yes (Life-Threatening, Other)
  Sender: FDA-Public Use
  Company Number: ES-SHIRE-SPV1-2010-01594

PATIENT
  Age: 15 Year
  Sex: Female

DRUGS (5)
  1. MEZAVANT [Suspect]
     Indication: COLITIS ULCERATIVE
     Dosage: 2.4 G, 1X/DAY:QD
     Route: 048
     Dates: end: 20100101
  2. MEZAVANT [Suspect]
     Dosage: 4.8 G, 1X/DAY:QD
     Route: 048
  3. PENTASA [Concomitant]
     Indication: COLITIS ULCERATIVE
     Route: 048
  4. MESALAZINA [Concomitant]
     Indication: COLITIS ULCERATIVE
     Route: 054
  5. ACETAMINOPHEN [Concomitant]
     Indication: ANALGESIC THERAPY
     Dosage: UNK, AS REQ'D

REACTIONS (3)
  - ANAEMIA [None]
  - ASTHENIA [None]
  - SYNCOPE [None]
